FAERS Safety Report 4577959-5 (Version None)
Quarter: 2005Q1

REPORT INFORMATION
  Report Type: 
  Country: None (occurrence: None)
  Receive Date: 20050209
  Receipt Date: 20050131
  Transmission Date: 20050727
  Serious: Yes (Hospitalization)
  Sender: FDA-Public Use
  Company Number: K200500179

PATIENT
  Age: 36 Year
  Sex: Male

DRUGS (3)
  1. KETALAR [Suspect]
     Dosage: SEE IMAGE, INTRAMUSCULAR
     Route: 030
  2. KETALAR [Suspect]
     Dosage: SEE IMAGE, INTRAMUSCULAR
     Route: 030
  3. XYLAZINE () 1.5G [Suspect]
     Dosage: INTRAMUSCULAR
     Route: 030

REACTIONS (23)
  - ASTHENIA [None]
  - BLOOD CREATINE PHOSPHOKINASE INCREASED [None]
  - BLOOD GLUCOSE INCREASED [None]
  - CONSTIPATION [None]
  - DISORIENTATION [None]
  - DIZZINESS [None]
  - DRUG ABUSER [None]
  - DRUG TOLERANCE [None]
  - DYSARTHRIA [None]
  - ECCHYMOSIS [None]
  - ELECTROCARDIOGRAM CHANGE [None]
  - ELECTROCARDIOGRAM T WAVE INVERSION [None]
  - HYPERTENSION [None]
  - HYPOREFLEXIA [None]
  - MIOSIS [None]
  - MYOCARDIAL ISCHAEMIA [None]
  - OVERDOSE [None]
  - SALIVARY HYPERSECRETION [None]
  - SINUS TACHYCARDIA [None]
  - SLUGGISHNESS [None]
  - TACHYCARDIA [None]
  - THERAPEUTIC AGENT TOXICITY [None]
  - VOMITING [None]
